FAERS Safety Report 25537273 (Version 1)
Quarter: 2025Q3

REPORT INFORMATION
  Report Type: Report from Study
  Country: BR (occurrence: BR)
  Receive Date: 20250710
  Receipt Date: 20250710
  Transmission Date: 20251020
  Serious: Yes (Other)
  Sender: Y-MABS THERAPEUTICS
  Company Number: BR-Y-MABS THERAPEUTICS, INC.-ODC2025-BR-002104

PATIENT

DRUGS (1)
  1. NAXITAMAB [Suspect]
     Active Substance: NAXITAMAB
     Indication: Neuroblastoma

REACTIONS (1)
  - Blindness transient [Recovered/Resolved]
